APPROVED DRUG PRODUCT: ETODOLAC
Active Ingredient: ETODOLAC
Strength: 300MG
Dosage Form/Route: CAPSULE;ORAL
Application: A075071 | Product #002
Applicant: MYLAN PHARMACEUTICALS INC
Approved: Sep 30, 1998 | RLD: No | RS: No | Type: DISCN